FAERS Safety Report 24724671 (Version 1)
Quarter: 2024Q4

REPORT INFORMATION
  Report Type: Spontaneous
  Country: US (occurrence: US)
  Receive Date: 20241212
  Receipt Date: 20241212
  Transmission Date: 20250115
  Serious: No
  Sender: TARO
  Company Number: US-TARO PHARMACEUTICALS USA INC.-2024TAR00158

PATIENT

DRUGS (1)
  1. BUTENAFINE HYDROCHLORIDE [Suspect]
     Active Substance: BUTENAFINE HYDROCHLORIDE
     Indication: Onychomycosis
     Dosage: UNK, BID, SOME, TO 8 TOES
     Route: 061
     Dates: start: 202312

REACTIONS (2)
  - Off label use [Unknown]
  - Therapeutic response unexpected [Unknown]

NARRATIVE: CASE EVENT DATE: 20231201
